FAERS Safety Report 5330963-1 (Version None)
Quarter: 2007Q2

REPORT INFORMATION
  Report Type: 
  Country: None (occurrence: None)
  Receive Date: 20070522
  Receipt Date: 20070507
  Transmission Date: 20071010
  Serious: Yes (Hospitalization)
  Sender: FDA-Public Use
  Company Number: US-JNJFOC-20070403498

PATIENT
  Sex: Male
  Weight: 84.37 kg

DRUGS (5)
  1. TRAMADOL HYDROCHLORIDE ER [Suspect]
     Route: 048
  2. TRAMADOL HYDROCHLORIDE ER [Suspect]
     Indication: OSTEOARTHRITIS
     Route: 048
  3. MELOXICAM [Suspect]
     Indication: OSTEOARTHRITIS
     Route: 048
  4. PRINIVIL [Concomitant]
     Indication: HYPERTENSION
     Route: 048
  5. MOTRIN [Concomitant]
     Route: 065

REACTIONS (7)
  - BALANCE DISORDER [None]
  - CELLULITIS [None]
  - CONFUSIONAL STATE [None]
  - DISORIENTATION [None]
  - FALL [None]
  - HEAD INJURY [None]
  - WOUND INFECTION STAPHYLOCOCCAL [None]
